FAERS Safety Report 7631633-7 (Version None)
Quarter: 2011Q3

REPORT INFORMATION
  Report Type: 
  Country: None (occurrence: None)
  Receive Date: 20110725
  Receipt Date: 20110131
  Transmission Date: 20111222
  Serious: No
  Sender: FDA-Public Use
  Company Number: US-BRISTOL-MYERS SQUIBB COMPANY-15518566

PATIENT
  Sex: Female

DRUGS (2)
  1. TYLENOL-500 [Concomitant]
  2. COUMADIN [Suspect]
     Dates: start: 20100901

REACTIONS (1)
  - BACK PAIN [None]
